FAERS Safety Report 14084416 (Version 1)
Quarter: 2017Q4

REPORT INFORMATION
  Report Type: Spontaneous
  Country: US (occurrence: None)
  Receive Date: 20171013
  Receipt Date: 20171013
  Transmission Date: 20180321
  Serious: Yes (Other)
  Sender: FDA-Public Use
  Company Number: None

PATIENT
  Age: 51 Year
  Sex: Female
  Weight: 70.31 kg

DRUGS (1)
  1. CONCERTA [Suspect]
     Active Substance: METHYLPHENIDATE HYDROCHLORIDE
     Indication: ATTENTION DEFICIT/HYPERACTIVITY DISORDER
     Route: 048
     Dates: start: 20170902, end: 20171002

REACTIONS (8)
  - Condition aggravated [None]
  - Fatigue [None]
  - Product substitution issue [None]
  - Disturbance in attention [None]
  - Attention deficit/hyperactivity disorder [None]
  - Somnolence [None]
  - Emotional disorder [None]
  - Impatience [None]

NARRATIVE: CASE EVENT DATE: 20170902
